FAERS Safety Report 22354268 (Version 1)
Quarter: 2023Q2

REPORT INFORMATION
  Report Type: Spontaneous
  Country: JP (occurrence: JP)
  Receive Date: 20230523
  Receipt Date: 20230523
  Transmission Date: 20230721
  Serious: Yes (Other)
  Sender: FDA-Public Use
  Company Number: JP-MLMSERVICE-2023050842764301

PATIENT
  Age: 78 Year
  Sex: Female

DRUGS (4)
  1. LETROZOLE [Suspect]
     Active Substance: LETROZOLE
     Indication: Metastases to lymph nodes
     Dates: start: 202005
  2. ABEMACICLIB [Suspect]
     Active Substance: ABEMACICLIB
     Indication: Invasive papillary breast carcinoma
     Dosage: ONE DOSE LEVEL REDUCTION: 100 MG X 2/DAY
     Dates: start: 202005, end: 2020
  3. ABEMACICLIB [Suspect]
     Active Substance: ABEMACICLIB
     Indication: HER2 positive breast cancer
     Dosage: ONE DOSE LEVEL REDUCTION: 100 MG X 2/DAY
     Dates: start: 202005, end: 2020
  4. LETROZOLE [Suspect]
     Active Substance: LETROZOLE
     Indication: Breast cancer metastatic
     Dates: start: 202005

REACTIONS (3)
  - Anaemia [Unknown]
  - Liver injury [Unknown]
  - Diarrhoea [Unknown]

NARRATIVE: CASE EVENT DATE: 20200101
